FAERS Safety Report 10067443 (Version 1)
Quarter: 2014Q2

REPORT INFORMATION
  Report Type: Spontaneous
  Country: US (occurrence: None)
  Receive Date: 20140408
  Receipt Date: 20140408
  Transmission Date: 20141212
  Serious: Yes (Hospitalization)
  Sender: FDA-Public Use
  Company Number: None

PATIENT
  Age: 69 Year
  Sex: Male

DRUGS (3)
  1. OXCARBAZEPINE [Suspect]
     Indication: CONVULSION
     Dosage: 2 PILLS
     Route: 048
  2. ESOMEPRAZOLE [Concomitant]
  3. VALSARTAN [Concomitant]

REACTIONS (1)
  - Hyponatraemia [None]
